FAERS Safety Report 6112663-3 (Version None)
Quarter: 2009Q1

REPORT INFORMATION
  Report Type: 
  Country: None (occurrence: None)
  Receive Date: 20090312
  Receipt Date: 20090304
  Transmission Date: 20090719
  Serious: Yes (Death, Other)
  Sender: FDA-Public Use
  Company Number: IN-JNJFOC-20090302112

PATIENT
  Age: 80 Year
  Sex: Male

DRUGS (2)
  1. REOPRO [Suspect]
     Route: 042
  2. REOPRO [Suspect]
     Indication: ANGIOPLASTY
     Route: 042

REACTIONS (2)
  - CARDIAC FAILURE [None]
  - MOUTH HAEMORRHAGE [None]
